FAERS Safety Report 4987694-7 (Version None)
Quarter: 2006Q2

REPORT INFORMATION
  Report Type: 
  Country: None (occurrence: None)
  Receive Date: 20060426
  Receipt Date: 20060404
  Transmission Date: 20061013
  Serious: Yes (Other)
  Sender: FDA-Public Use
  Company Number: NL200604000947

PATIENT
  Sex: Male

DRUGS (1)
  1. FORTEO [Suspect]
     Dates: end: 20060404

REACTIONS (2)
  - FLUSHING [None]
  - SHOCK [None]
